FAERS Safety Report 7225132-4 (Version None)
Quarter: 2011Q1

REPORT INFORMATION
  Report Type: 
  Country: None (occurrence: None)
  Receive Date: 20110113
  Receipt Date: 20110105
  Transmission Date: 20110831
  Serious: Yes (Other)
  Sender: FDA-Public Use
  Company Number: A0886556A

PATIENT
  Age: 52 Year
  Sex: Female

DRUGS (2)
  1. CAPECITABINE [Suspect]
     Dosage: 2000MG PER DAY
     Dates: start: 20070101
  2. TYKERB [Suspect]
     Indication: BREAST CANCER
     Dosage: 250MG SEE DOSAGE TEXT
     Route: 048
     Dates: start: 20070101, end: 20100101

REACTIONS (4)
  - DISEASE PROGRESSION [None]
  - METASTASES TO CENTRAL NERVOUS SYSTEM [None]
  - PALMAR-PLANTAR ERYTHRODYSAESTHESIA SYNDROME [None]
  - PRODUCTIVE COUGH [None]
